FAERS Safety Report 7131378-6 (Version None)
Quarter: 2010Q4

REPORT INFORMATION
  Report Type: 
  Country: None (occurrence: None)
  Receive Date: 20101124
  Receipt Date: 20101124
  Transmission Date: 20110411
  Serious: No
  Sender: FDA-Public Use
  Company Number: None

PATIENT
  Age: 29 Year
  Sex: Female
  Weight: 74.8435 kg

DRUGS (1)
  1. CIPROFLOXACIN [Suspect]
     Indication: URINARY TRACT INFECTION
     Dosage: 1 TABLET 1 EVERY 12 HOURS PO
     Route: 048
     Dates: start: 20101015, end: 20101018

REACTIONS (4)
  - ARTHRALGIA [None]
  - FATIGUE [None]
  - MENTAL STATUS CHANGES [None]
  - PYREXIA [None]
